FAERS Safety Report 22167147 (Version 1)
Quarter: 2023Q2

REPORT INFORMATION
  Report Type: Other
  Country: US (occurrence: US)
  Receive Date: 20230403
  Receipt Date: 20230403
  Transmission Date: 20230721
  Serious: Yes (Hospitalization, Other)
  Sender: FDA-Public Use
  Company Number: US-Aprecia Pharmaceuticals-APRE20230083

PATIENT
  Age: 67 Year
  Sex: Female

DRUGS (10)
  1. LEVETIRACETAM [Suspect]
     Active Substance: LEVETIRACETAM
     Indication: Seizure prophylaxis
     Dosage: 1000 MG
     Route: 065
  2. LEVETIRACETAM [Suspect]
     Active Substance: LEVETIRACETAM
     Dosage: 1000 MG
     Route: 065
  3. PHENOBARBITAL [Concomitant]
     Active Substance: PHENOBARBITAL
     Indication: Seizure prophylaxis
     Dosage: 130 MG
  4. FENTANYL [Concomitant]
     Active Substance: FENTANYL
     Indication: Induction of anaesthesia
     Dosage: 50 MCG
  5. FENTANYL [Concomitant]
     Active Substance: FENTANYL
     Dosage: 25 MCG
  6. lidocaine_ [Concomitant]
     Indication: Induction of anaesthesia
     Dosage: 70 MG
  7. lidocaine_ [Concomitant]
     Dosage: 100 MG
  8. PROPOFOL [Concomitant]
     Active Substance: PROPOFOL
     Indication: Induction of anaesthesia
     Dosage: 150 MG
  9. ROCURONIUM [Concomitant]
     Active Substance: ROCURONIUM BROMIDE
     Indication: Induction of anaesthesia
     Dosage: 50 MG
  10. ROCURONIUM [Concomitant]
     Active Substance: ROCURONIUM BROMIDE
     Dosage: 60 MG

REACTIONS (9)
  - Kounis syndrome [Recovered/Resolved]
  - Hypotension [Recovered/Resolved]
  - Myocardial ischaemia [Recovered/Resolved]
  - Cardiac dysfunction [Recovered/Resolved]
  - Acute coronary syndrome [Recovered/Resolved]
  - Anaphylactic reaction [Recovered/Resolved]
  - Pulmonary oedema [Recovered/Resolved]
  - Cardiomyopathy [Recovered/Resolved]
  - Hypersensitivity [Recovered/Resolved]
